FAERS Safety Report 20447051 (Version 1)
Quarter: 2022Q1

REPORT INFORMATION
  Report Type: Spontaneous
  Country: ES (occurrence: ES)
  Receive Date: 20220209
  Receipt Date: 20220209
  Transmission Date: 20220423
  Serious: Yes (Other)
  Sender: FDA-Public Use
  Company Number: None

PATIENT
  Age: 41 Year
  Sex: Female
  Weight: 56 kg

DRUGS (4)
  1. ETONOGESTREL [Suspect]
     Active Substance: ETONOGESTREL
     Indication: Contraception
     Dosage: UNK
     Route: 023
     Dates: start: 2011
  2. CERVARIX [Suspect]
     Active Substance: HUMAN PAPILLOMAVIRUS TYPE 16 L1 CAPSID PROTEIN RESIDUES 2-471 ANTIGEN\HUMAN PAPILLOMAVIRUS TYPE 18 L
     Indication: Prophylaxis
     Dosage: 10 SUSPENSION INJECTION PRE-FILLED SYRINGE 0.5 ML + 10 NEEDLES; PLACE OF ADMINISTRATION: DELTOID
     Dates: start: 20080701, end: 20080701
  3. CERVARIX [Suspect]
     Active Substance: HUMAN PAPILLOMAVIRUS TYPE 16 L1 CAPSID PROTEIN RESIDUES 2-471 ANTIGEN\HUMAN PAPILLOMAVIRUS TYPE 18 L
     Dosage: 10 SUSPENSION INJECTION PRE-FILLED SYRINGE 0.5 ML + 10 NEEDLES; PLACE OF ADMINISTRATION: DELTOID
     Dates: start: 20080801, end: 20080801
  4. CERVARIX [Suspect]
     Active Substance: HUMAN PAPILLOMAVIRUS TYPE 16 L1 CAPSID PROTEIN RESIDUES 2-471 ANTIGEN\HUMAN PAPILLOMAVIRUS TYPE 18 L
     Dosage: 10 SUSPENSION INJECTION PRE-FILLED SYRINGE 0.5 ML + 10 NEEDLES; PLACE OF ADMINISTRATION: DELTOID
     Dates: start: 20081120, end: 20081120

REACTIONS (6)
  - Menstruation delayed [Recovered/Resolved with Sequelae]
  - Fatigue [Not Recovered/Not Resolved]
  - Blood prolactin abnormal [Unknown]
  - Disturbance in attention [Recovered/Resolved]
  - Pain [Not Recovered/Not Resolved]
  - Hypotension [Recovered/Resolved]

NARRATIVE: CASE EVENT DATE: 20080801
